FAERS Safety Report 4331631-5 (Version None)
Quarter: 2004Q2

REPORT INFORMATION
  Report Type: 
  Country: None (occurrence: None)
  Receive Date: 20040405
  Receipt Date: 20040205
  Transmission Date: 20050107
  Serious: Yes (Other)
  Sender: FDA-Public Use
  Company Number: US-MERCK-0402USA00548

PATIENT
  Age: 36 Year
  Sex: Male
  Weight: 78 kg

DRUGS (2)
  1. ZETIA [Suspect]
     Indication: HYPERCHOLESTEROLAEMIA
     Route: 048
     Dates: start: 20040101, end: 20040129
  2. AMBIEN [Suspect]
     Route: 065
     Dates: start: 20040101, end: 20040129

REACTIONS (5)
  - DRUG HYPERSENSITIVITY [None]
  - LOCALISED OEDEMA [None]
  - PHARYNGEAL ERYTHEMA [None]
  - PHARYNGOLARYNGEAL PAIN [None]
  - SINUS PAIN [None]
